FAERS Safety Report 4462063-7 (Version None)
Quarter: 2004Q3

REPORT INFORMATION
  Report Type: 
  Country: None (occurrence: None)
  Receive Date: 20040927
  Receipt Date: 20040927
  Transmission Date: 20050211
  Serious: Yes (Hospitalization)
  Sender: FDA-Public Use
  Company Number: None

PATIENT
  Age: 49 Year
  Sex: Female

DRUGS (18)
  1. TAMOXIFEN CITRATE [Suspect]
     Indication: BREAST CANCER
     Dosage: 20MG/DAY Q DAY
     Dates: start: 20031205
  2. ARIMIDEX [Suspect]
     Indication: BREAST CANCER
     Dosage: 1 MG/DAY Q DAY
     Dates: start: 20031205
  3. PLACEBO [Suspect]
  4. PLACEBO [Suspect]
  5. PAXIL CR [Concomitant]
  6. INDERAL [Concomitant]
  7. LASIX [Concomitant]
  8. PRAVACHOL [Concomitant]
  9. TAMOXIFEN CITRATE [Concomitant]
  10. ANASTROZOLE [Concomitant]
  11. VITAMIN C [Concomitant]
  12. COZAAR [Concomitant]
  13. TEQUIN [Concomitant]
  14. NPH INSULIN [Concomitant]
  15. INSULIN REGULAR NOVOLIN [Concomitant]
  16. ZYRTEC [Concomitant]
  17. METOLAZONE [Concomitant]
  18. POTASSIUM CHLORIDE [Concomitant]

REACTIONS (5)
  - ASTHENIA [None]
  - HEADACHE [None]
  - HYPOKALAEMIA [None]
  - PNEUMONIA [None]
  - SWELLING [None]
